FAERS Safety Report 24586772 (Version 1)
Quarter: 2024Q4

REPORT INFORMATION
  Report Type: Spontaneous
  Country: US (occurrence: US)
  Receive Date: 20241107
  Receipt Date: 20241107
  Transmission Date: 20250115
  Serious: No
  Sender: CIPLA
  Company Number: US-CIPLA LTD.-2024US04796

PATIENT

DRUGS (3)
  1. CITALOPRAM [Suspect]
     Active Substance: CITALOPRAM
     Indication: Product used for unknown indication
     Dosage: UNK (OLD PRODUCT)
     Route: 065
  2. CITALOPRAM [Suspect]
     Active Substance: CITALOPRAM
     Dosage: 40 MILLIGRAM, QD (1 TABLET PER DAY)
     Route: 065
     Dates: start: 20240504, end: 20240506
  3. CITALOPRAM [Suspect]
     Active Substance: CITALOPRAM
     Dosage: 40 MILLIGRAM, QD (1 DOSAGE FORM, QD (1 TABLET PER DAY) (OLD PRODUCT)
     Route: 065
     Dates: start: 20240506

REACTIONS (4)
  - Head discomfort [Recovered/Resolved]
  - Incorrect dosage administered [Unknown]
  - Drug ineffective [Recovered/Resolved]
  - Product quality issue [Unknown]

NARRATIVE: CASE EVENT DATE: 20240504
